FAERS Safety Report 10072787 (Version 1)
Quarter: 2014Q2

REPORT INFORMATION
  Report Type: Report from Study
  Country: RU (occurrence: RU)
  Receive Date: 20140411
  Receipt Date: 20140411
  Transmission Date: 20141212
  Serious: Yes (Other)
  Sender: FDA-Public Use
  Company Number: RU-SA-2014SA039834

PATIENT
  Age: 63 Year
  Sex: Female

DRUGS (6)
  1. PLAVIX [Suspect]
     Indication: THROMBOSIS PROPHYLAXIS
     Route: 048
     Dates: start: 201210
  2. PLAVIX [Suspect]
     Indication: THROMBOSIS PROPHYLAXIS
     Route: 048
  3. KARDIKET [Concomitant]
     Indication: MYOCARDIAL ISCHAEMIA
     Route: 048
  4. TORASEMIDE [Concomitant]
     Route: 048
  5. CONCOR [Concomitant]
     Indication: HYPERTENSION
     Route: 048
  6. ISOKET [Concomitant]
     Indication: MYOCARDIAL ISCHAEMIA
     Dosage: SPRAY?ROUTE: INH

REACTIONS (7)
  - Coronary artery stenosis [Unknown]
  - Abdominal pain upper [Unknown]
  - Alopecia [Unknown]
  - Tooth loss [Unknown]
  - Epistaxis [Unknown]
  - Gingival bleeding [Unknown]
  - Urticaria [Unknown]
